FAERS Safety Report 8970849 (Version 1)
Quarter: 2012Q4

REPORT INFORMATION
  Report Type: 
  Country: US (occurrence: US)
  Receive Date: 20121211
  Receipt Date: 20121211
  Transmission Date: 20130627
  Serious: No
  Sender: FDA-Public Use
  Company Number: US-PFIZER INC-2012309826

PATIENT
  Age: 45 Year
  Sex: Male
  Weight: 81.3 kg

DRUGS (4)
  1. CISPLATIN [Suspect]
     Dosage: UNK, cyclic
     Dates: start: 200809
  2. CISPLATIN [Suspect]
     Dosage: UNK, cyclic (cycle 4)
     Dates: start: 20081222
  3. ETOPOSIDE [Suspect]
     Dosage: UNK, cyclic
     Dates: start: 200809
  4. ETOPOSIDE [Suspect]
     Dosage: UNK, cyclic (cycle 4)
     Dates: start: 20081222

REACTIONS (2)
  - Disease progression [Unknown]
  - Neoplasm malignant [Unknown]
